FAERS Safety Report 11895343 (Version 1)
Quarter: 2016Q1

REPORT INFORMATION
  Report Type: Spontaneous
  Country: US (occurrence: None)
  Receive Date: 20160106
  Receipt Date: 20160106
  Transmission Date: 20160526
  Serious: No
  Sender: FDA-Public Use
  Company Number: None

PATIENT

DRUGS (2)
  1. TPN [Suspect]
     Active Substance: AMINO ACIDS\DEXTROSE\ELECTROLYTES NOS\SOYBEAN OIL
  2. EXACTAMIX/ABACUS SOFTWARE [Suspect]
     Active Substance: DEVICE

REACTIONS (2)
  - Product preparation error [None]
  - Device computer issue [None]
